FAERS Safety Report 4648915-3 (Version None)
Quarter: 2005Q2

REPORT INFORMATION
  Report Type: 
  Country: None (occurrence: None)
  Receive Date: 20050427
  Receipt Date: 20050411
  Transmission Date: 20051028
  Serious: Yes (Hospitalization)
  Sender: FDA-Public Use
  Company Number: 1786

PATIENT
  Age: 40 Year
  Sex: Male

DRUGS (1)
  1. AVINZA [Suspect]

REACTIONS (3)
  - COGNITIVE DISORDER [None]
  - RENAL FAILURE [None]
  - RESPIRATORY FAILURE [None]
